FAERS Safety Report 8077655-6 (Version None)
Quarter: 2012Q1

REPORT INFORMATION
  Report Type: 
  Country: None (occurrence: None)
  Receive Date: 20120127
  Receipt Date: 20120116
  Transmission Date: 20120608
  Serious: Yes (Death, Hospitalization)
  Sender: FDA-Public Use
  Company Number: NL-MEDIMMUNE-MEDI-0013860

PATIENT
  Sex: Male
  Weight: 4.83 kg

DRUGS (2)
  1. SYNAGIS [Suspect]
     Route: 030
     Dates: start: 20111107, end: 20111107
  2. SYNAGIS [Suspect]
     Route: 030
     Dates: start: 20111007, end: 20111007

REACTIONS (2)
  - DEATH [None]
  - ADVERSE EVENT [None]
